FAERS Safety Report 17271961 (Version 1)
Quarter: 2020Q1

REPORT INFORMATION
  Report Type: Spontaneous
  Country: US (occurrence: US)
  Receive Date: 20191223
  Receipt Date: 20191223
  Transmission Date: 20200409
  Serious: Yes (Hospitalization)
  Sender: FDA-Public Use
  Company Number: None

PATIENT
  Age: 49 Year
  Sex: Male
  Weight: 76 kg

DRUGS (1)
  1. ADALIMUMAB (ADALIMUMAB 40MG/0.4ML INJ, PEN, KIT) [Suspect]
     Active Substance: ADALIMUMAB
     Indication: CROHN^S DISEASE
     Route: 058
     Dates: start: 20190626, end: 20191127

REACTIONS (1)
  - Angioedema [None]

NARRATIVE: CASE EVENT DATE: 20191127
